FAERS Safety Report 7596231-2 (Version None)
Quarter: 2011Q3

REPORT INFORMATION
  Report Type: 
  Country: None (occurrence: None)
  Receive Date: 20110707
  Receipt Date: 20110627
  Transmission Date: 20111222
  Serious: Yes (Other)
  Sender: FDA-Public Use
  Company Number: US-BAYER-2011-055467

PATIENT
  Age: 71 Year
  Sex: Female

DRUGS (2)
  1. SYMBICORT [Concomitant]
     Indication: BRONCHITIS
  2. AVELOX [Suspect]
     Indication: BRONCHITIS
     Dosage: 400 MG, UNK
     Route: 048
     Dates: start: 20110622

REACTIONS (3)
  - TONGUE DISORDER [None]
  - DIZZINESS [None]
  - TREMOR [None]
